FAERS Safety Report 11237400 (Version 1)
Quarter: 2015Q3

REPORT INFORMATION
  Report Type: Spontaneous
  Country: CA (occurrence: CA)
  Receive Date: 20150703
  Receipt Date: 20150703
  Transmission Date: 20151125
  Serious: Yes (Other)
  Sender: FDA-Public Use
  Company Number: PHHY2015CA073619

PATIENT
  Age: 32 Year
  Sex: Female

DRUGS (3)
  1. LETROZOLE. [Suspect]
     Active Substance: LETROZOLE
     Indication: LABOUR INDUCTION
     Route: 065
  2. MAGNESIUM SULFATE. [Suspect]
     Active Substance: MAGNESIUM SULFATE
     Indication: PROPHYLAXIS
     Route: 065
  3. OXYTOCIN. [Suspect]
     Active Substance: OXYTOCIN
     Indication: LABOUR INDUCTION
     Route: 065

REACTIONS (17)
  - Hypoaesthesia [Unknown]
  - Hypertension [Unknown]
  - Diplopia [Recovered/Resolved]
  - Aspartate aminotransferase increased [Unknown]
  - Pre-eclampsia [Unknown]
  - Alanine aminotransferase increased [Unknown]
  - VIIth nerve paralysis [Recovered/Resolved]
  - Gamma-glutamyltransferase increased [Unknown]
  - Blood alkaline phosphatase increased [Unknown]
  - Muscle disorder [Unknown]
  - VIth nerve paralysis [Recovered/Resolved]
  - Acute kidney injury [Unknown]
  - Off label use [Unknown]
  - Facial asymmetry [Unknown]
  - Proteinuria [Unknown]
  - Blood creatinine increased [Unknown]
  - Maternal exposure during pregnancy [Unknown]
